FAERS Safety Report 6119505-0 (Version None)
Quarter: 2009Q1

REPORT INFORMATION
  Report Type: 
  Country: None (occurrence: None)
  Receive Date: 20090316
  Receipt Date: 20090306
  Transmission Date: 20090719
  Serious: Yes (Hospitalization)
  Sender: FDA-Public Use
  Company Number: A0773186A

PATIENT
  Age: 79 Year
  Sex: Female
  Weight: 77.3 kg

DRUGS (10)
  1. AVANDIA [Suspect]
     Indication: DIABETES MELLITUS
     Dosage: 4MG TWICE PER DAY
     Route: 048
     Dates: start: 20031101, end: 20070201
  2. AVANDAMET [Suspect]
     Indication: DIABETES MELLITUS
     Route: 048
     Dates: start: 20040801, end: 20041201
  3. ACTOS [Concomitant]
  4. GLUCOPHAGE [Concomitant]
  5. METFORMIN HCL [Concomitant]
  6. AMARYL [Concomitant]
  7. PRILOSEC [Concomitant]
  8. ALPHAGAN [Concomitant]
  9. XALATAN [Concomitant]
  10. LUMIGAN [Concomitant]

REACTIONS (5)
  - ANGINA UNSTABLE [None]
  - CARDIAC FAILURE [None]
  - CORONARY ARTERY DISEASE [None]
  - MITRAL VALVE INCOMPETENCE [None]
  - PULMONARY HYPERTENSION [None]
